FAERS Safety Report 23811292 (Version 2)
Quarter: 2024Q2

REPORT INFORMATION
  Report Type: Report from Study
  Country: HU (occurrence: HU)
  Receive Date: 20240502
  Receipt Date: 20240507
  Transmission Date: 20240716
  Serious: Yes (Hospitalization)
  Sender: FDA-Public Use
  Company Number: HU-ABBVIE-5741927

PATIENT
  Age: 68 Year
  Sex: Female

DRUGS (13)
  1. CARBIDOPA\LEVODOPA [Suspect]
     Active Substance: CARBIDOPA\LEVODOPA
     Indication: Parkinson^s disease
     Dosage: MORNING DOSE: 7.0 ML; CONTINUOUS: 2.7 ML/HOUR; EXTRA DOSE: 1.5 ML
     Route: 050
     Dates: start: 20230925
  2. CARBIDOPA\LEVODOPA [Suspect]
     Active Substance: CARBIDOPA\LEVODOPA
  3. Prenudol [Concomitant]
     Indication: Product used for unknown indication
     Dosage: 140 MILLIGRAM?FORM STRENGTH: 70MG
     Route: 048
     Dates: start: 2022
  4. MIRVEDOL [Concomitant]
     Indication: Memory impairment
     Dosage: 20 MILLIGRAM?FORM STRENGTH: 10MG
     Route: 048
     Dates: start: 2022
  5. STALEVO [Concomitant]
     Active Substance: CARBIDOPA\ENTACAPONE\LEVODOPA
     Indication: Parkinson^s disease
     Dosage: 175 MG LEVODOPA, 43.75 MG CARBIDOPA, 200 MG ENTACAPONE / TABLET
     Route: 048
  6. SCIPPA [Concomitant]
     Indication: Depression
     Dosage: 10 MILLIGRAM?FORM STRENGTH: 10MG
     Route: 048
     Dates: start: 2022
  7. Noacid [Concomitant]
     Indication: Gastrooesophageal reflux disease
     Dosage: 80 MILLIGRAM?FORM STRENGTH: 40MG
     Route: 048
     Dates: start: 2023
  8. ASPIRIN [Concomitant]
     Active Substance: ASPIRIN
     Indication: Pulmonary embolism
     Dosage: 100 MILLIGRAM?FORM STRENGTH: 100MG
     Route: 048
     Dates: start: 2023
  9. PROPAFENONE [Concomitant]
     Active Substance: PROPAFENONE
     Indication: Product used for unknown indication
     Dosage: 150 MILLIGRAM?FORM STRENGTH: 150MG
     Route: 048
     Dates: start: 2023
  10. PERINDOPRIL ARGININE [Concomitant]
     Active Substance: PERINDOPRIL ARGININE
     Indication: Hypertension
     Dosage: 2.5 MILLIGRAM?FORM STRENGTH: 5MG?FREQUENCY TEXT: HALF TABLET DAILY
     Route: 048
     Dates: start: 202404
  11. MIRTAZAPINE [Concomitant]
     Active Substance: MIRTAZAPINE
     Indication: Depression
     Dosage: 30 MILLIGRAM?FORM STRENGTH: 30MG
     Route: 048
     Dates: start: 2022
  12. METFORMIN HYDROCHLORIDE [Concomitant]
     Active Substance: METFORMIN HYDROCHLORIDE
     Indication: Type 2 diabetes mellitus
     Dosage: 1000 MILLIGRAM?FORM STRENGTH: 1000MG?FREQUENCY TEXT: TWO TIMES HALF TABLET
     Route: 048
     Dates: start: 2013
  13. QUETIAPINE FUMARATE [Concomitant]
     Active Substance: QUETIAPINE FUMARATE
     Indication: Hallucination
     Dosage: 25 MILLIGRAM?FORM STRENGTH: 25MG
     Route: 048
     Dates: start: 202302

REACTIONS (6)
  - Blood potassium decreased [Recovered/Resolved]
  - Dizziness [Recovering/Resolving]
  - Anaemia [Recovered/Resolved]
  - Immobile [Recovered/Resolved]
  - Asthenia [Recovering/Resolving]
  - Blood sodium decreased [Recovered/Resolved]

NARRATIVE: CASE EVENT DATE: 20240401
